FAERS Safety Report 5279319-0 (Version None)
Quarter: 2007Q1

REPORT INFORMATION
  Report Type: 
  Country: None (occurrence: None)
  Receive Date: 20070328
  Receipt Date: 20060426
  Transmission Date: 20070707
  Serious: No
  Sender: FDA-Public Use
  Company Number: US-AMGEN-KDL177738

PATIENT
  Sex: Female
  Weight: 65 kg

DRUGS (5)
  1. NEULASTA [Suspect]
     Indication: CHEMOTHERAPY
     Route: 058
     Dates: start: 20060410, end: 20060410
  2. EMEND [Suspect]
     Dates: start: 20060222, end: 20060630
  3. ZOFRAN [Suspect]
     Dates: start: 20060222, end: 20060630
  4. TAXOL [Concomitant]
     Dates: start: 20060222, end: 20060616
  5. CARBOPLATIN [Concomitant]
     Dates: start: 20060222, end: 20060616

REACTIONS (1)
  - ACUTE FEBRILE NEUTROPHILIC DERMATOSIS [None]
